FAERS Safety Report 7812235-6 (Version None)
Quarter: 2011Q4

REPORT INFORMATION
  Report Type: 
  Country: None (occurrence: None)
  Receive Date: 20111011
  Receipt Date: 20110929
  Transmission Date: 20120403
  Serious: Yes (Other)
  Sender: FDA-Public Use
  Company Number: AUR-APL-2011-05357

PATIENT
  Age: 43 Year
  Sex: Female
  Weight: 79.82 kg

DRUGS (2)
  1. ADVIL (MEFENAMIC ACID) [Concomitant]
  2. CITALOPRAM HYDROBROMIDE [Suspect]
     Indication: DEPRESSION
     Dosage: (40 MG,1 D),ORAL
     Route: 048
     Dates: start: 19990101

REACTIONS (5)
  - INSOMNIA [None]
  - MANIA [None]
  - MENTAL DISORDER [None]
  - SPEECH DISORDER [None]
  - CRYING [None]
